FAERS Safety Report 12643377 (Version 1)
Quarter: 2016Q3

REPORT INFORMATION
  Report Type: Report from Study
  Country: ZA (occurrence: ZA)
  Receive Date: 20160811
  Receipt Date: 20160811
  Transmission Date: 20161109
  Serious: Yes (Death, Hospitalization, Other)
  Sender: FDA-Public Use
  Company Number: ZA-AMGEN-ZAFSL2016103765

PATIENT
  Age: 43 Year
  Sex: Female

DRUGS (1)
  1. ARANESP [Suspect]
     Active Substance: DARBEPOETIN ALFA
     Indication: PRODUCT USED FOR UNKNOWN INDICATION
     Dosage: 30 MUG/KG, SUBCUTANEOUSLY/INTRAVENOUSLY, QWK
     Route: 058
     Dates: end: 201607

REACTIONS (2)
  - Brain neoplasm [Unknown]
  - Death [Fatal]

NARRATIVE: CASE EVENT DATE: 201607
